FAERS Safety Report 18137413 (Version 2)
Quarter: 2020Q3

REPORT INFORMATION
  Report Type: Spontaneous
  Country: CN (occurrence: CN)
  Receive Date: 20200812
  Receipt Date: 20200818
  Transmission Date: 20201103
  Serious: Yes (Other)
  Sender: FDA-Public Use
  Company Number: CN-B.I. PHARMACEUTICALS,INC./RIDGEFIELD-2020-BI-040734

PATIENT
  Age: 68 Year
  Sex: Male

DRUGS (1)
  1. GILOTRIF [Suspect]
     Active Substance: AFATINIB
     Indication: LUNG ADENOCARCINOMA STAGE IV
     Route: 065
     Dates: start: 20190712

REACTIONS (2)
  - Malignant neoplasm progression [Not Recovered/Not Resolved]
  - Drug resistance [Unknown]

NARRATIVE: CASE EVENT DATE: 201908
